FAERS Safety Report 14967054 (Version 1)
Quarter: 2018Q2

REPORT INFORMATION
  Report Type: Spontaneous
  Country: JP (occurrence: JP)
  Receive Date: 20180604
  Receipt Date: 20180604
  Transmission Date: 20180711
  Serious: Yes (Other)
  Sender: FDA-Public Use
  Company Number: JP-CHEPLA-C20170720_A

PATIENT

DRUGS (4)
  1. CYTARABINE. [Suspect]
     Active Substance: CYTARABINE
     Indication: ACUTE PROMYELOCYTIC LEUKAEMIA
  2. IDARUBICIN [Suspect]
     Active Substance: IDARUBICIN
     Indication: ACUTE PROMYELOCYTIC LEUKAEMIA
  3. ATRA [Suspect]
     Active Substance: TRETINOIN
     Indication: ACUTE PROMYELOCYTIC LEUKAEMIA
  4. RECOMBINANT HUMAN SOLUBLE THROMBOMODULIN (RTM) [Concomitant]
     Indication: DISSEMINATED INTRAVASCULAR COAGULATION

REACTIONS (2)
  - Acute promyelocytic leukaemia differentiation syndrome [Unknown]
  - Disseminated intravascular coagulation [Unknown]
